FAERS Safety Report 20108753 (Version 4)
Quarter: 2022Q1

REPORT INFORMATION
  Report Type: Report from Study
  Country: US (occurrence: US)
  Receive Date: 20211124
  Receipt Date: 20220126
  Transmission Date: 20220424
  Serious: Yes (Death, Hospitalization, Other)
  Sender: FDA-Public Use
  Company Number: US-GILEAD-2021-0557443

PATIENT
  Age: 70 Year
  Sex: Male
  Weight: 63 kg

DRUGS (7)
  1. SOFOSBUVIR\VELPATASVIR [Suspect]
     Active Substance: SOFOSBUVIR\VELPATASVIR
     Indication: Chronic hepatitis C
     Dosage: 400/100MG, QD
     Route: 048
     Dates: start: 20211024, end: 20211117
  2. ALBUMIN HUMAN [Concomitant]
     Active Substance: ALBUMIN HUMAN
  3. LACTULOSE [Concomitant]
     Active Substance: LACTULOSE
  4. MIDODRINE [Concomitant]
     Active Substance: MIDODRINE
  5. MIRTAZAPINE [Concomitant]
     Active Substance: MIRTAZAPINE
  6. PANTOPRAZOLE [Concomitant]
     Active Substance: PANTOPRAZOLE
  7. RIFAXIMIN [Concomitant]
     Active Substance: RIFAXIMIN

REACTIONS (3)
  - Multiple organ dysfunction syndrome [Fatal]
  - Renal failure [Fatal]
  - Intentional dose omission [Not Recovered/Not Resolved]

NARRATIVE: CASE EVENT DATE: 20211110
